FAERS Safety Report 9629415 (Version 1)
Quarter: 2013Q4

REPORT INFORMATION
  Report Type: Spontaneous
  Country: US (occurrence: US)
  Receive Date: 20131017
  Receipt Date: 20131017
  Transmission Date: 20140711
  Serious: No
  Sender: FDA-Public Use
  Company Number: US-ASTRAZENECA-2013SE48109

PATIENT
  Age: 45 Year
  Sex: Male

DRUGS (1)
  1. CRESTOR [Suspect]
     Indication: LOW DENSITY LIPOPROTEIN INCREASED
     Route: 048

REACTIONS (7)
  - Chromaturia [Recovered/Resolved]
  - Muscle atrophy [Recovered/Resolved]
  - Arthritis [Recovered/Resolved]
  - Blood creatinine increased [Recovered/Resolved]
  - Exercise tolerance decreased [Recovered/Resolved]
  - Arthralgia [Recovered/Resolved]
  - Lethargy [Recovered/Resolved]
